FAERS Safety Report 17215720 (Version 1)
Quarter: 2019Q4

REPORT INFORMATION
  Report Type: Report from Study
  Country: ES (occurrence: ES)
  Receive Date: 20191230
  Receipt Date: 20191230
  Transmission Date: 20200122
  Serious: Yes (Other)
  Sender: FDA-Public Use
  Company Number: ES-MYLANLABS-2019M1129471

PATIENT
  Age: 59 Year
  Sex: Male

DRUGS (4)
  1. VENTOLIN [Concomitant]
     Active Substance: ALBUTEROL SULFATE
     Dosage: UNK
     Route: 065
  2. DIAZEPAM. [Concomitant]
     Active Substance: DIAZEPAM
     Dosage: UNK
     Route: 065
  3. MIRTAZAPINE. [Suspect]
     Active Substance: MIRTAZAPINE
     Indication: PSYCHOPATHIC PERSONALITY
     Dosage: 30 MILLIGRAM, QD, 0-0-1
     Route: 048
     Dates: start: 20190304, end: 20190510
  4. XOTERNA [Concomitant]
     Dosage: UNK
     Route: 065

REACTIONS (1)
  - Long QT syndrome [Recovering/Resolving]

NARRATIVE: CASE EVENT DATE: 20190510
